FAERS Safety Report 5793822-6 (Version None)
Quarter: 2008Q2

REPORT INFORMATION
  Report Type: 
  Country: None (occurrence: None)
  Receive Date: 20080601
  Receipt Date: 20080115
  Transmission Date: 20081010
  Serious: No
  Sender: FDA-Public Use
  Company Number: US200801002945

PATIENT
  Age: 83 Year
  Sex: Female

DRUGS (17)
  1. BYETTA [Suspect]
     Indication: TYPE 2 DIABETES MELLITUS
     Dosage: 5 UG, 2/D, SUBCUTANEOUS ; 5 UG, 2/D, SUBCUTANEOUS ; 5 UG, 2/D, SUBCUTANEOUS
     Route: 058
     Dates: start: 20061201, end: 20070101
  2. BYETTA [Suspect]
     Indication: TYPE 2 DIABETES MELLITUS
     Dosage: 5 UG, 2/D, SUBCUTANEOUS ; 5 UG, 2/D, SUBCUTANEOUS ; 5 UG, 2/D, SUBCUTANEOUS
     Route: 058
     Dates: start: 20071101
  3. BYETTA [Suspect]
     Indication: TYPE 2 DIABETES MELLITUS
     Dosage: 5 UG, 2/D, SUBCUTANEOUS ; 5 UG, 2/D, SUBCUTANEOUS ; 5 UG, 2/D, SUBCUTANEOUS
     Route: 058
     Dates: start: 20071101
  4. BYETTA [Suspect]
  5. PRILOSEC [Concomitant]
  6. ALLEGRA [Concomitant]
  7. MICARDIS [Concomitant]
  8. HYDROCHLOROTHIAZIDE (HYDROCHLOROTHAZIDE) [Concomitant]
  9. SOTALOL HCL [Concomitant]
  10. CALCIUM WITH VITAMIN D (CALCIUM PHOSPHATE, CALCIUM SODIUM LACTATE, ERG [Concomitant]
  11. COUMADIN [Concomitant]
  12. PRAVACHOL [Concomitant]
  13. ZETIA [Concomitant]
  14. AVANDIA [Concomitant]
  15. INSULIN (INSULIN) [Concomitant]
  16. AMARYL [Concomitant]
  17. SYNTHROID [Concomitant]

REACTIONS (7)
  - ACCIDENTAL OVERDOSE [None]
  - BLOOD GLUCOSE INCREASED [None]
  - COUGH [None]
  - EAR PAIN [None]
  - LARYNGITIS [None]
  - MALAISE [None]
  - PHARYNGOLARYNGEAL PAIN [None]
